FAERS Safety Report 9315253 (Version 5)
Quarter: 2013Q3

REPORT INFORMATION
  Report Type: Report from Study
  Country: US (occurrence: US)
  Receive Date: 20130529
  Receipt Date: 20130729
  Transmission Date: 20140515
  Serious: Yes (Hospitalization)
  Sender: FDA-Public Use
  Company Number: US-BRISTOL-MYERS SQUIBB COMPANY-18925073

PATIENT
  Age: 45 Year
  Sex: Female

DRUGS (3)
  1. ARIPIPRAZOLE IM DEPOT [Suspect]
     Indication: SCHIZOPHRENIA
     Dosage: REG2-24SEP12-300MG?DOSE RD:400MG-300MG ON 24SEP12 ?IJ,IM DET?400MG 27AUG12 LT DOSE?300MG 13MAR13
     Route: 030
     Dates: start: 20120730, end: 20130313
  2. NAPROXEN [Concomitant]
     Dates: start: 20130301
  3. FLONASE [Concomitant]
     Dates: start: 201205

REACTIONS (1)
  - Psychotic disorder [Recovered/Resolved]
